FAERS Safety Report 8198268-1 (Version None)
Quarter: 2012Q1

REPORT INFORMATION
  Report Type: 
  Country: None (occurrence: None)
  Receive Date: 20120309
  Receipt Date: 20120302
  Transmission Date: 20120608
  Serious: Yes (Hospitalization)
  Sender: FDA-Public Use
  Company Number: PHHY2012DE007177

PATIENT
  Age: 55 Year
  Sex: Female
  Weight: 79 kg

DRUGS (1)
  1. GILENYA [Suspect]
     Indication: MULTIPLE SCLEROSIS
     Dosage: 0.5 MG, DAY
     Route: 048
     Dates: start: 20111215, end: 20111215

REACTIONS (4)
  - SINUS ARRHYTHMIA [None]
  - HYPOTENSION [None]
  - ATRIOVENTRICULAR BLOCK SECOND DEGREE [None]
  - SINUS BRADYCARDIA [None]
